FAERS Safety Report 11898355 (Version 1)
Quarter: 2016Q1

REPORT INFORMATION
  Report Type: Spontaneous
  Country: US (occurrence: None)
  Receive Date: 20160107
  Receipt Date: 20160107
  Transmission Date: 20160526
  Serious: Yes (Hospitalization, Other)
  Sender: FDA-Public Use
  Company Number: None

PATIENT
  Age: 71 Year
  Sex: Male
  Weight: 56.25 kg

DRUGS (2)
  1. CENTRUM VITAMINS LIQUID [Concomitant]
     Active Substance: VITAMINS
  2. ATENOLOL. [Suspect]
     Active Substance: ATENOLOL
     Indication: HYPERTHYROIDISM
     Route: 048
     Dates: start: 20151125, end: 20151213

REACTIONS (5)
  - Seizure [None]
  - Laceration [None]
  - Loss of consciousness [None]
  - Fall [None]
  - Head injury [None]

NARRATIVE: CASE EVENT DATE: 20151213
